FAERS Safety Report 5177131-4 (Version None)
Quarter: 2006Q4

REPORT INFORMATION
  Report Type: 
  Country: None (occurrence: None)
  Receive Date: 20061207
  Receipt Date: 20061127
  Transmission Date: 20070319
  Serious: Yes (Hospitalization)
  Sender: FDA-Public Use
  Company Number: 002#4#2006-00212

PATIENT
  Age: 75 Year
  Sex: Male
  Weight: 54.4316 kg

DRUGS (8)
  1. ISOSORBIDE MONONITRATE [Suspect]
     Indication: ANGINA PECTORIS
     Dosage: 60 MG, 1 IN 1 D, ORAL
     Route: 048
     Dates: start: 20060101, end: 20060101
  2. ATORVASTATIN CALCIUM [Concomitant]
  3. VALSARTAN [Concomitant]
  4. AMLODIPINE BESYLATE [Concomitant]
  5. CLOPIDOGREL BISULFATE [Concomitant]
  6. PREGABALIN [Concomitant]
  7. MORPHINE [Concomitant]
  8. HYDROCODONE BITARTRATE [Concomitant]

REACTIONS (6)
  - CHEST PAIN [None]
  - DRUG INEFFECTIVE [None]
  - INTERVERTEBRAL DISC PROTRUSION [None]
  - MEDICATION RESIDUE [None]
  - PHARMACEUTICAL PRODUCT COMPLAINT [None]
  - SCIATICA [None]
